FAERS Safety Report 9162818 (Version 1)
Quarter: 2013Q1

REPORT INFORMATION
  Report Type: Spontaneous
  Country: US (occurrence: US)
  Receive Date: 20130314
  Receipt Date: 20130314
  Transmission Date: 20140127
  Serious: Yes (Hospitalization)
  Sender: FDA-Public Use
  Company Number: US-INCYTE CORPORATION-2013IN000469

PATIENT
  Age: 61 Year
  Sex: Male

DRUGS (1)
  1. JAKAFI [Suspect]
     Indication: MYELOFIBROSIS

REACTIONS (4)
  - Dermatitis exfoliative [Recovering/Resolving]
  - Local swelling [Unknown]
  - Dyspnoea [Unknown]
  - Anaemia [Unknown]
